FAERS Safety Report 6197692-6 (Version None)
Quarter: 2009Q2

REPORT INFORMATION
  Report Type: 
  Country: None (occurrence: None)
  Receive Date: 20090514
  Receipt Date: 20080728
  Transmission Date: 20091009
  Serious: Yes (Other)
  Sender: FDA-Public Use
  Company Number: AE-708-237

PATIENT
  Age: 80 Year
  Sex: Male

DRUGS (13)
  1. LIDODERM [Suspect]
     Indication: BACK PAIN
     Dosage: 2 PATCHES
  2. ZYPREXA [Concomitant]
  3. ASPIRIN [Concomitant]
  4. LEXAPRO [Concomitant]
  5. KLONAPIN [Concomitant]
  6. ARICEPT [Concomitant]
  7. NAMENDA [Concomitant]
  8. ATROVENT NASAL [Concomitant]
  9. SPRAY [Concomitant]
  10. MULTI-VITAMIN [Concomitant]
  11. LYRICAM [Concomitant]
  12. TYLENOL (CAPLET) [Concomitant]
  13. VITAMIN B-12 [Concomitant]

REACTIONS (1)
  - UNRESPONSIVE TO STIMULI [None]
